FAERS Safety Report 7984957-8 (Version None)
Quarter: 2011Q4

REPORT INFORMATION
  Report Type: 
  Country: None (occurrence: None)
  Receive Date: 20111216
  Receipt Date: 20111031
  Transmission Date: 20120403
  Serious: No
  Sender: FDA-Public Use
  Company Number: US-ALLERGAN-1114382US

PATIENT
  Age: 55 Year
  Sex: Female
  Weight: 47.619 kg

DRUGS (2)
  1. LATISSE [Suspect]
     Indication: HYPOTRICHOSIS
     Dosage: 2 GTT, QHS
     Route: 061
     Dates: start: 20110801, end: 20111001
  2. MASCARA [Concomitant]
     Indication: THERAPEUTIC SKIN CARE TOPICAL

REACTIONS (4)
  - DRUG INEFFECTIVE [None]
  - VISUAL ACUITY REDUCED [None]
  - OFF LABEL USE [None]
  - VISION BLURRED [None]
